FAERS Safety Report 10312576 (Version 2)
Quarter: 2014Q4

REPORT INFORMATION
  Report Type: Spontaneous
  Country: TR (occurrence: TR)
  Receive Date: 20140718
  Receipt Date: 20141029
  Transmission Date: 20150528
  Serious: Yes (Other)
  Sender: FDA-Public Use
  Company Number: TR-BRISTOL-MYERS SQUIBB COMPANY-21174735

PATIENT
  Age: 46 Year
  Sex: Male

DRUGS (1)
  1. ORENCIA [Suspect]
     Active Substance: ABATACEPT
     Indication: RHEUMATOID ARTHRITIS

REACTIONS (6)
  - Gastrointestinal infection [Unknown]
  - Helicobacter gastritis [Unknown]
  - Anaemia [Unknown]
  - Enteritis [Unknown]
  - Haemorrhoids [Unknown]
  - Duodenitis [Unknown]
